FAERS Safety Report 6212687-1 (Version None)
Quarter: 2009Q2

REPORT INFORMATION
  Report Type: 
  Country: None (occurrence: None)
  Receive Date: 20090603
  Receipt Date: 20090527
  Transmission Date: 20091009
  Serious: Yes (Hospitalization)
  Sender: FDA-Public Use
  Company Number: GB-ROCHE-635167

PATIENT
  Sex: Male
  Weight: 109.7 kg

DRUGS (6)
  1. ORLISTAT [Suspect]
     Indication: OBESITY
     Route: 048
     Dates: start: 20081020, end: 20090506
  2. BISOPROLOL [Concomitant]
     Indication: ANGINA PECTORIS
     Dosage: REPORTED AS BISOPROL
     Route: 048
  3. PERINDOPRIL [Concomitant]
     Indication: ANGINA PECTORIS
     Route: 048
  4. SIMVASTATIN [Concomitant]
     Route: 048
  5. GLICLAZIDE [Concomitant]
     Route: 048
  6. FRUSEMIDE [Concomitant]
     Indication: DIURETIC THERAPY
     Route: 048

REACTIONS (2)
  - GASTROENTERITIS [None]
  - KIDNEY INFECTION [None]
